FAERS Safety Report 5657207-5 (Version None)
Quarter: 2008Q1

REPORT INFORMATION
  Report Type: 
  Country: None (occurrence: None)
  Receive Date: 20080310
  Receipt Date: 20080305
  Transmission Date: 20080703
  Serious: Yes (Other)
  Sender: FDA-Public Use
  Company Number: US-AVENTIS-200811424US

PATIENT
  Sex: Female

DRUGS (1)
  1. KETEK [Suspect]
     Dates: start: 20060301

REACTIONS (8)
  - ABDOMINAL PAIN [None]
  - ABDOMINAL PAIN UPPER [None]
  - ASTHENIA [None]
  - FATIGUE [None]
  - HEPATIC FAILURE [None]
  - HEPATITIS [None]
  - JAUNDICE [None]
  - LIVER FUNCTION TEST ABNORMAL [None]
